FAERS Safety Report 15276877 (Version 1)
Quarter: 2018Q3

REPORT INFORMATION
  Report Type: Spontaneous
  Country: US (occurrence: US)
  Receive Date: 20180814
  Receipt Date: 20180814
  Transmission Date: 20181010
  Serious: No
  Sender: FDA-Public Use
  Company Number: US-GALDERMA-US18029491

PATIENT
  Sex: Female

DRUGS (5)
  1. PROACTIV REVITALIZING TONER [Concomitant]
     Route: 061
  2. PROACTIV RENEWING CLEANSER [Concomitant]
     Active Substance: BENZOYL PEROXIDE
     Route: 061
  3. PROACTIV MARK FADING PADS [Concomitant]
     Route: 061
  4. PROACTIV MD ADAPALENE ACNE TREATMENT [Suspect]
     Active Substance: ADAPALENE
     Indication: PRODUCT USED FOR UNKNOWN INDICATION
     Route: 061
  5. PROACTIV GREEN TEA MOISTURIZER [Concomitant]
     Active Substance: COSMETICS
     Route: 061

REACTIONS (1)
  - Skin burning sensation [Unknown]
